FAERS Safety Report 7862341-5 (Version None)
Quarter: 2011Q4

REPORT INFORMATION
  Report Type: 
  Country: None (occurrence: None)
  Receive Date: 20111027
  Receipt Date: 20101103
  Transmission Date: 20120403
  Serious: No
  Sender: FDA-Public Use
  Company Number: US-AMGEN-KDL238187

PATIENT
  Age: 67 Year
  Sex: Female

DRUGS (5)
  1. HUMIRA [Concomitant]
     Dosage: UNK
     Dates: start: 20080101
  2. METHOTREXATE [Concomitant]
     Dosage: 12.5 MG, QWK
     Route: 048
     Dates: start: 20070112
  3. ENBREL [Suspect]
     Indication: RHEUMATOID ARTHRITIS
     Dosage: 50 MG, QWK
     Route: 058
     Dates: start: 20060621
  4. ENBREL [Suspect]
     Dosage: 50 MG, QWK
     Dates: start: 20060621
  5. METHOTREXATE [Concomitant]
     Dosage: 2.5 MG, 3 TIMES/WK

REACTIONS (10)
  - VOMITING [None]
  - NAUSEA [None]
  - RASH PUSTULAR [None]
  - SOMNOLENCE [None]
  - WEIGHT INCREASED [None]
  - WEIGHT DECREASED [None]
  - MALAISE [None]
  - LYMPHADENOPATHY [None]
  - RHEUMATOID ARTHRITIS [None]
  - NERVOUSNESS [None]
